FAERS Safety Report 8875837 (Version 2)
Quarter: 2013Q1

REPORT INFORMATION
  Report Type: Report from Study
  Country: JP (occurrence: JP)
  Receive Date: 20121030
  Receipt Date: 20130213
  Transmission Date: 20140127
  Serious: Yes (Other)
  Sender: FDA-Public Use
  Company Number: JP-GLAXOSMITHKLINE-B0840592A

PATIENT
  Age: 61 Year
  Sex: Female
  Weight: 40 kg

DRUGS (3)
  1. TYKERB [Suspect]
     Indication: BREAST CANCER
     Route: 048
     Dates: start: 20111128, end: 20120917
  2. XELODA [Concomitant]
     Route: 048
     Dates: start: 20111128, end: 20120408
  3. TRASTUZUMAB [Concomitant]
     Indication: BREAST CANCER

REACTIONS (5)
  - Hypokalaemia [Recovered/Resolved]
  - Paronychia [Unknown]
  - Diarrhoea [Recovering/Resolving]
  - Cheilitis [Unknown]
  - Rash [Recovering/Resolving]
